FAERS Safety Report 5950388-5 (Version None)
Quarter: 2008Q4

REPORT INFORMATION
  Report Type: 
  Country: None (occurrence: None)
  Receive Date: 20081112
  Receipt Date: 20081107
  Transmission Date: 20090506
  Serious: Yes (Death, Hospitalization, Other)
  Sender: FDA-Public Use
  Company Number: PHBS2008US06274

PATIENT
  Age: 9 Year
  Sex: Male

DRUGS (4)
  1. CYCLOSPORINE [Suspect]
     Indication: HEART TRANSPLANT
     Dosage: UNK
     Dates: start: 19880101, end: 20070101
  2. AZATHIOPRINE [Suspect]
     Indication: HEART TRANSPLANT
     Dosage: UNK
     Dates: start: 19880101, end: 20010101
  3. MYCOPHENOLATE MOFETIL [Suspect]
     Indication: HEART TRANSPLANT
     Dosage: UNK
     Dates: start: 20010101, end: 20070101
  4. TACROLIMUS [Suspect]
     Indication: HEART TRANSPLANT
     Dosage: UNK
     Dates: start: 20070101

REACTIONS (12)
  - BILIARY DILATATION [None]
  - CHOLECYSTECTOMY [None]
  - CHOLEDOCHAL CYST [None]
  - CYST REMOVAL [None]
  - EPSTEIN-BARR VIRUS INFECTION [None]
  - HEART TRANSPLANT REJECTION [None]
  - HEPATIC ENZYME INCREASED [None]
  - HEPATICOJEJUNOSTOMY [None]
  - HODGKIN'S DISEASE [None]
  - LYMPHADENOPATHY [None]
  - PYREXIA [None]
  - SPLENOMEGALY [None]
